FAERS Safety Report 4926908-6 (Version None)
Quarter: 2006Q1

REPORT INFORMATION
  Report Type: 
  Country: None (occurrence: None)
  Receive Date: 20060228
  Receipt Date: 20050907
  Transmission Date: 20060701
  Serious: No
  Sender: FDA-Public Use
  Company Number: US-GLAXOSMITHKLINE-A0573314A

PATIENT
  Age: 41 Year
  Sex: Female

DRUGS (6)
  1. LAMICTAL [Suspect]
     Indication: BIPOLAR DISORDER
     Dosage: 200MG PER DAY
     Route: 048
     Dates: start: 20040801
  2. LITHIUM [Concomitant]
  3. SYNTHROID [Concomitant]
  4. KLONOPIN [Concomitant]
  5. ESTRADIOL [Concomitant]
  6. NEXIUM [Concomitant]
     Route: 065

REACTIONS (5)
  - AMNESIA [None]
  - CHEST PAIN [None]
  - DRUG INEFFECTIVE [None]
  - DYSPHONIA [None]
  - MUSCLE DISORDER [None]
